FAERS Safety Report 19793334 (Version 1)
Quarter: 2021Q3

REPORT INFORMATION
  Report Type: Spontaneous
  Country: US (occurrence: US)
  Receive Date: 20210906
  Receipt Date: 20210906
  Transmission Date: 20211014
  Serious: No
  Sender: FDA-Public Use
  Company Number: US-ACCORD-206809

PATIENT
  Sex: Male
  Weight: 63.05 kg

DRUGS (4)
  1. VERAPAMIL [Concomitant]
     Active Substance: VERAPAMIL HYDROCHLORIDE
     Dosage: TWICE A DAY
     Route: 048
  2. ATENOLOL/ATENOLOL HYDROCHLORIDE [Concomitant]
     Active Substance: ATENOLOL HYDROCHLORIDE
     Dosage: 12.5
  3. SPIRONOLACTONE ACCORD [Suspect]
     Active Substance: SPIRONOLACTONE
     Indication: PRODUCT USED FOR UNKNOWN INDICATION
     Dates: start: 202005, end: 202006
  4. EPLERENONE ACCORD [Suspect]
     Active Substance: EPLERENONE
     Indication: BLOOD ALDOSTERONE
     Dosage: ONCE A DAY MORNING
     Route: 048
     Dates: start: 202009, end: 20201024

REACTIONS (5)
  - Breast tenderness [Recovering/Resolving]
  - Polyuria [Recovered/Resolved]
  - Poor quality sleep [Recovered/Resolved]
  - Feeling abnormal [Recovered/Resolved]
  - Product dose omission issue [Unknown]
